FAERS Safety Report 8796080 (Version 1)
Quarter: 2012Q4

REPORT INFORMATION
  Report Type: 
  Country: US (occurrence: US)
  Receive Date: 20120920
  Receipt Date: 20120920
  Transmission Date: 20130627
  Serious: Yes (Life-Threatening)
  Sender: FDA-Public Use
  Company Number: US-BRISTOL-MYERS SQUIBB COMPANY-16948804

PATIENT
  Age: 46 Year
  Sex: Female

DRUGS (3)
  1. TRAZODONE HCL [Suspect]
  2. OXYCODONE [Suspect]
  3. AMITRIPTYLINE [Suspect]

REACTIONS (2)
  - Overdose [Unknown]
  - Hypoxic-ischaemic encephalopathy [Recovered/Resolved]
